FAERS Safety Report 24379262 (Version 1)
Quarter: 2024Q3

REPORT INFORMATION
  Report Type: Spontaneous
  Country: FR (occurrence: FR)
  Receive Date: 20240930
  Receipt Date: 20240930
  Transmission Date: 20241016
  Serious: Yes (Hospitalization)
  Sender: Waylis
  Company Number: None

PATIENT
  Age: 32 Year
  Sex: Female
  Weight: 56.5 kg

DRUGS (3)
  1. DIAZEPAM [Suspect]
     Active Substance: DIAZEPAM
     Indication: Product used for unknown indication
     Dosage: ; IN TOTAL
     Route: 050
     Dates: start: 20240824, end: 20240824
  2. ALPRAZOLAM [Suspect]
     Active Substance: ALPRAZOLAM
     Indication: Product used for unknown indication
     Dosage: NP
     Route: 050
     Dates: start: 20240824, end: 20240824
  3. COCAINE [Suspect]
     Active Substance: COCAINE
     Indication: Product used for unknown indication
     Dosage: NP
     Dates: start: 20240824, end: 20240824

REACTIONS (5)
  - Substance use disorder [Not Recovered/Not Resolved]
  - Bradycardia [Recovered/Resolved]
  - Hypotension [Recovered/Resolved]
  - Amnesia [Not Recovered/Not Resolved]
  - Drug use disorder [Not Recovered/Not Resolved]

NARRATIVE: CASE EVENT DATE: 20240825
